FAERS Safety Report 21502237 (Version 1)
Quarter: 2022Q4

REPORT INFORMATION
  Report Type: Spontaneous
  Country: US (occurrence: US)
  Receive Date: 20221025
  Receipt Date: 20221025
  Transmission Date: 20230113
  Serious: No
  Sender: FDA-Public Use
  Company Number: US-SA-SAC20221021000872

PATIENT
  Age: 67 Year
  Sex: Male

DRUGS (2)
  1. DUPIXENT [Suspect]
     Active Substance: DUPILUMAB
     Indication: Dermatitis atopic
     Dosage: 300 MG, QOW
     Route: 058
     Dates: start: 20210226
  2. FLU [INFLUENZA VACCINE] [Concomitant]
     Indication: Immunisation

REACTIONS (4)
  - Pain in extremity [Unknown]
  - Hypoacusis [Unknown]
  - Dyspnoea exertional [Unknown]
  - Musculoskeletal disorder [Unknown]
